FAERS Safety Report 25029919 (Version 1)
Quarter: 2025Q1

REPORT INFORMATION
  Report Type: Spontaneous
  Country: US (occurrence: US)
  Receive Date: 20250303
  Receipt Date: 20250303
  Transmission Date: 20250408
  Serious: Yes (Other)
  Sender: APOTEX
  Company Number: US-APOTEX-2025AP002573

PATIENT
  Age: 62 Year
  Sex: Male

DRUGS (14)
  1. GEMCITABINE [Suspect]
     Active Substance: GEMCITABINE
     Indication: Pancreatic carcinoma metastatic
     Route: 042
     Dates: start: 202003, end: 202004
  2. GEMCITABINE [Suspect]
     Active Substance: GEMCITABINE
     Route: 042
     Dates: start: 20200414, end: 20200622
  3. GEMCITABINE [Suspect]
     Active Substance: GEMCITABINE
     Route: 042
     Dates: start: 20200714, end: 20200721
  4. ABRAXANE [Suspect]
     Active Substance: PACLITAXEL
     Indication: Pancreatic carcinoma metastatic
     Route: 042
     Dates: start: 202003, end: 202004
  5. ABRAXANE [Suspect]
     Active Substance: PACLITAXEL
     Route: 042
     Dates: start: 20200414, end: 20200622
  6. ABRAXANE [Suspect]
     Active Substance: PACLITAXEL
     Route: 042
     Dates: start: 20200714, end: 20200721
  7. CISPLATIN [Suspect]
     Active Substance: CISPLATIN
     Indication: Pancreatic carcinoma metastatic
     Route: 065
     Dates: start: 202007
  8. N 803 [Concomitant]
     Indication: Pancreatic carcinoma metastatic
     Route: 058
     Dates: start: 202003, end: 202006
  9. N 803 [Concomitant]
     Route: 058
     Dates: start: 202008, end: 202009
  10. PD-L1 T-HANK [Concomitant]
     Indication: Pancreatic carcinoma metastatic
     Route: 042
     Dates: start: 202003, end: 202006
  11. PD-L1 T-HANK [Concomitant]
     Route: 065
     Dates: start: 202008, end: 202009
  12. ALDOXORUBICIN [Concomitant]
     Active Substance: ALDOXORUBICIN
     Indication: Pancreatic carcinoma metastatic
     Route: 065
     Dates: start: 202003, end: 202006
  13. CYCLOPHOSPHAMIDE [Concomitant]
     Active Substance: CYCLOPHOSPHAMIDE
     Indication: Pancreatic carcinoma metastatic
     Route: 048
     Dates: start: 202003, end: 202005
  14. PEMBROLIZUMAB [Concomitant]
     Active Substance: PEMBROLIZUMAB
     Indication: Pancreatic carcinoma metastatic
     Route: 042
     Dates: start: 20200721

REACTIONS (4)
  - Neutropenia [Unknown]
  - Pyrexia [Unknown]
  - Chills [Unknown]
  - Nausea [Unknown]

NARRATIVE: CASE EVENT DATE: 20200701
